FAERS Safety Report 25492059 (Version 1)
Quarter: 2025Q2

REPORT INFORMATION
  Report Type: Spontaneous
  Country: CA (occurrence: CA)
  Receive Date: 20250630
  Receipt Date: 20250630
  Transmission Date: 20250717
  Serious: Yes (Other)
  Sender: CELLTRION
  Company Number: CA-CELLTRION INC.-2025CA020472

PATIENT

DRUGS (3)
  1. INFLIXIMAB [Suspect]
     Active Substance: INFLIXIMAB
     Indication: Crohn^s disease
     Dosage: MAINTENANCE 120 MG EVERY 1 WEEKS
     Route: 058
     Dates: start: 20250321
  2. PANTOPRAZOLE MAGNESIUM [Concomitant]
     Active Substance: PANTOPRAZOLE MAGNESIUM
  3. VITAMINS NOS [Concomitant]
     Active Substance: VITAMINS

REACTIONS (8)
  - Renal impairment [Unknown]
  - Condition aggravated [Unknown]
  - C-reactive protein increased [Unknown]
  - Flatulence [Unknown]
  - Anaemia [Unknown]
  - Pyrexia [Unknown]
  - Fatigue [Unknown]
  - Intentional product use issue [Unknown]
